FAERS Safety Report 18106354 (Version 4)
Quarter: 2021Q1

REPORT INFORMATION
  Report Type: Report from Study
  Country: EC (occurrence: EC)
  Receive Date: 20200803
  Receipt Date: 20210222
  Transmission Date: 20210419
  Serious: Yes (Hospitalization, Other)
  Sender: FDA-Public Use
  Company Number: NVSC2020EC215476

PATIENT
  Age: 67 Year
  Sex: Male
  Weight: 64 kg

DRUGS (5)
  1. SANDOSTATIN LAR DEPOT [Suspect]
     Active Substance: OCTREOTIDE ACETATE
     Indication: NEUROENDOCRINE TUMOUR
     Dosage: 30 MG, QMO
     Route: 030
     Dates: start: 20190128
  2. SANDOSTATIN LAR DEPOT [Suspect]
     Active Substance: OCTREOTIDE ACETATE
  3. SANDOSTATIN LAR DEPOT [Suspect]
     Active Substance: OCTREOTIDE ACETATE
  4. LEVOTHYROXINE. [Concomitant]
     Active Substance: LEVOTHYROXINE
     Indication: HYPOTHYROIDISM
     Dosage: 1 DF, QD
     Route: 065
     Dates: start: 2019
  5. ZOPICLONE [Concomitant]
     Active Substance: ZOPICLONE
     Indication: PRODUCT USED FOR UNKNOWN INDICATION
     Dosage: 7.5 MG, QD (1 OF 7.5 MG)
     Route: 065
     Dates: start: 2011

REACTIONS (13)
  - Inappropriate schedule of product administration [Not Recovered/Not Resolved]
  - Influenza [Recovering/Resolving]
  - COVID-19 pneumonia [Recovering/Resolving]
  - Kidney infection [Unknown]
  - Abdominal pain upper [Not Recovered/Not Resolved]
  - Parosmia [Recovering/Resolving]
  - Back pain [Not Recovered/Not Resolved]
  - Paralysis [Recovering/Resolving]
  - Memory impairment [Unknown]
  - Lung disorder [Recovering/Resolving]
  - Tremor [Not Recovered/Not Resolved]
  - Product availability issue [Unknown]
  - Dyspnoea [Recovering/Resolving]

NARRATIVE: CASE EVENT DATE: 202007
